FAERS Safety Report 4634472-4 (Version None)
Quarter: 2005Q2

REPORT INFORMATION
  Report Type: 
  Country: None (occurrence: None)
  Receive Date: 20050413
  Receipt Date: 20050408
  Transmission Date: 20051028
  Serious: Yes (Other)
  Sender: FDA-Public Use
  Company Number: CH-MERCK-0504CHE00015

PATIENT
  Age: 27 Year
  Sex: Female

DRUGS (2)
  1. NOROXIN [Suspect]
     Indication: CYSTITIS
     Route: 048
     Dates: start: 20041115, end: 20041231
  2. CIPROFLOXACIN [Suspect]
     Indication: CYSTITIS
     Route: 048
     Dates: start: 20041115, end: 20041228

REACTIONS (1)
  - DRUG EXPOSURE DURING PREGNANCY [None]
